FAERS Safety Report 14384874 (Version 2)
Quarter: 2018Q1

REPORT INFORMATION
  Report Type: Spontaneous
  Country: ES (occurrence: ES)
  Receive Date: 20180115
  Receipt Date: 20180117
  Transmission Date: 20180509
  Serious: No
  Sender: FDA-Public Use
  Company Number: ES-JNJFOC-20171225421

PATIENT
  Age: 38 Year
  Sex: Female

DRUGS (1)
  1. TOPIRAMATE. [Suspect]
     Active Substance: TOPIRAMATE
     Indication: EATING DISORDER
     Route: 048

REACTIONS (3)
  - Granuloma annulare [Recovered/Resolved]
  - Product use in unapproved indication [Unknown]
  - Off label use [Unknown]
